FAERS Safety Report 5192174-2 (Version None)
Quarter: 2006Q4

REPORT INFORMATION
  Report Type: 
  Country: None (occurrence: None)
  Receive Date: 20061227
  Receipt Date: 20061219
  Transmission Date: 20070319
  Serious: Yes (Death)
  Sender: FDA-Public Use
  Company Number: US-ABBOTT-06P-163-0353808-00

PATIENT
  Age: 71 Year
  Sex: Female

DRUGS (2)
  1. TARKA [Suspect]
     Indication: DRUG USE FOR UNKNOWN INDICATION
     Route: 048
  2. INHALERS [Concomitant]
     Indication: EMPHYSEMA
     Route: 055

REACTIONS (1)
  - MYOCARDIAL INFARCTION [None]
